FAERS Safety Report 10086080 (Version 1)
Quarter: 2014Q2

REPORT INFORMATION
  Report Type: Spontaneous
  Country: US (occurrence: US)
  Receive Date: 20140418
  Receipt Date: 20140418
  Transmission Date: 20141212
  Serious: No
  Sender: FDA-Public Use
  Company Number: US-TEVA-476474USA

PATIENT
  Age: 25 Year
  Sex: 0

DRUGS (1)
  1. NUVIGIL [Suspect]

REACTIONS (3)
  - Myalgia [Unknown]
  - Influenza like illness [Unknown]
  - Rash [Unknown]
